FAERS Safety Report 25075198 (Version 2)
Quarter: 2025Q3

REPORT INFORMATION
  Report Type: Spontaneous
  Country: EU (occurrence: EU)
  Receive Date: 20250313
  Receipt Date: 20250802
  Transmission Date: 20251020
  Serious: Yes (Hospitalization, Other)
  Sender: ALEXION PHARMACEUTICALS
  Company Number: None

PATIENT
  Age: 98 Year
  Sex: Female
  Weight: 40.7 kg

DRUGS (7)
  1. ESOMEPRAZOLE [Suspect]
     Active Substance: ESOMEPRAZOLE
     Indication: Prophylaxis
     Dosage: 20 MILLIGRAM, QD
     Dates: start: 20220525
  2. LORMETAZEPAM [Suspect]
     Active Substance: LORMETAZEPAM
     Indication: Anxiety
     Dosage: 0.5 DOSAGE FORM, Q12H
     Dates: start: 20240601, end: 20241227
  3. ZOPICLONE [Suspect]
     Active Substance: ZOPICLONE
     Indication: Anxiety
     Dosage: 1 DOSAGE FORM, QD
     Dates: start: 20240129, end: 20240215
  4. ZOPICLONE [Suspect]
     Active Substance: ZOPICLONE
     Dosage: 1 DOSAGE FORM, QD
     Dates: start: 20240601, end: 20241226
  5. OXAZEPAM [Suspect]
     Active Substance: OXAZEPAM
     Indication: Anxiety
     Dosage: 10 MILLIGRAM, QD
     Dates: start: 20240129, end: 20240215
  6. OXAZEPAM [Suspect]
     Active Substance: OXAZEPAM
     Dosage: 10 MILLIGRAM, QD
     Dates: start: 20240601, end: 20241226
  7. OXAZEPAM [Suspect]
     Active Substance: OXAZEPAM
     Dosage: 3 DOSAGE FORM, QD
     Dates: start: 20250126

REACTIONS (2)
  - Multiple fractures [Recovered/Resolved with Sequelae]
  - Fall [Recovered/Resolved with Sequelae]

NARRATIVE: CASE EVENT DATE: 20241219
